FAERS Safety Report 17229665 (Version 1)
Quarter: 2020Q1

REPORT INFORMATION
  Report Type: Spontaneous
  Country: ES (occurrence: ES)
  Receive Date: 20200103
  Receipt Date: 20200103
  Transmission Date: 20200409
  Serious: Yes (Life-Threatening, Disabling)
  Sender: FDA-Public Use
  Company Number: ES-PFIZER INC-2020001098

PATIENT
  Age: 54 Year
  Sex: Male
  Weight: 79 kg

DRUGS (3)
  1. CANDESARTAN ALTER [Concomitant]
     Indication: HYPERTENSION
     Dosage: 16 MG, DAILY
     Route: 048
     Dates: start: 20151222, end: 20190705
  2. NEURONTIN [Suspect]
     Active Substance: GABAPENTIN
     Indication: NEURALGIA
     Dosage: 300 MG, 3X/DAY (EVERY 8 HOURS)
     Route: 048
     Dates: start: 20190619, end: 20190703
  3. DICLOFENAC [Concomitant]
     Active Substance: DICLOFENAC
     Indication: NECK PAIN
     Dosage: 50 MG, 3X/DAY (EVERY 8 HOURS)
     Route: 048
     Dates: start: 20190610, end: 20190703

REACTIONS (1)
  - Venous thrombosis [Recovering/Resolving]

NARRATIVE: CASE EVENT DATE: 20190703
